FAERS Safety Report 26000038 (Version 1)
Quarter: 2025Q4

REPORT INFORMATION
  Report Type: Spontaneous
  Country: EU (occurrence: EU)
  Receive Date: 20251105
  Receipt Date: 20251105
  Transmission Date: 20260118
  Serious: Yes (Death, Other)
  Sender: RANBAXY
  Company Number: EU-SUN PHARMACEUTICAL INDUSTRIES LTD-2025RR-534997

PATIENT
  Age: 65 Year
  Sex: Male

DRUGS (4)
  1. PEMETREXED [Suspect]
     Active Substance: PEMETREXED
     Indication: Non-small cell lung cancer
     Dosage: 500 MILLIGRAM/SQ. METER, EVERY 21 DAYS
     Route: 040
     Dates: start: 20210819
  2. CARBOPLATIN [Suspect]
     Active Substance: CARBOPLATIN
     Indication: Non-small cell lung cancer
     Dosage: AUC 5, EVERY 5 DAYS
     Route: 065
     Dates: start: 20210819
  3. CARBOPLATIN [Suspect]
     Active Substance: CARBOPLATIN
     Dosage: AUC 5, FOUR CYCLES
     Route: 065
     Dates: start: 202408, end: 202411
  4. PACLITAXEL [Suspect]
     Active Substance: PACLITAXEL
     Indication: Disease progression
     Dosage: 175 MILLIGRAM/SQ. METER, FOUR CYCLES
     Route: 065
     Dates: start: 202408, end: 202411

REACTIONS (3)
  - Therapeutic product effect incomplete [Unknown]
  - Disease progression [Fatal]
  - Metastasis [Fatal]
